FAERS Safety Report 6037569-X (Version None)
Quarter: 2009Q1

REPORT INFORMATION
  Report Type: 
  Country: None (occurrence: None)
  Receive Date: 20090114
  Receipt Date: 20090106
  Transmission Date: 20090719
  Serious: Yes (Hospitalization)
  Sender: FDA-Public Use
  Company Number: US-ELI_LILLY_AND_COMPANY-US200901000703

PATIENT
  Sex: Female

DRUGS (6)
  1. CYMBALTA [Suspect]
     Indication: NERVOUSNESS
     Dosage: 60 MG, DAILY (1/D)
  2. GLYBURIDE [Concomitant]
     Indication: DIABETES MELLITUS
  3. LISINOPRIL [Concomitant]
     Indication: BLOOD PRESSURE
  4. PRAVASTATIN [Concomitant]
     Indication: BLOOD CHOLESTEROL
  5. OMEPRAZOLE [Concomitant]
     Indication: GASTROOESOPHAGEAL REFLUX DISEASE
  6. XALATAN [Concomitant]
     Indication: GLAUCOMA

REACTIONS (8)
  - AGGRESSION [None]
  - APATHY [None]
  - CRYING [None]
  - DIABETES MELLITUS [None]
  - DRUG EFFECT DECREASED [None]
  - DYSPNOEA [None]
  - HYPERSOMNIA [None]
  - INSOMNIA [None]
